FAERS Safety Report 9705364 (Version 2)
Quarter: 2013Q4

REPORT INFORMATION
  Report Type: Report from Study
  Country: CL (occurrence: CL)
  Receive Date: 20131122
  Receipt Date: 20131226
  Transmission Date: 20140711
  Serious: Yes (Other)
  Sender: FDA-Public Use
  Company Number: PHHY2013CL134114

PATIENT
  Sex: Female

DRUGS (2)
  1. TAREG [Suspect]
     Indication: BLOOD PRESSURE ABNORMAL
     Dosage: UNK UKN, UNK
     Route: 048
     Dates: end: 201309
  2. LEXAPRO [Concomitant]
     Indication: DEPRESSION

REACTIONS (1)
  - Thrombosis [Recovering/Resolving]
